FAERS Safety Report 10218726 (Version 1)
Quarter: 2014Q2

REPORT INFORMATION
  Report Type: Report from Study
  Country: US (occurrence: US)
  Receive Date: 20140605
  Receipt Date: 20140605
  Transmission Date: 20141212
  Serious: Yes (Hospitalization)
  Sender: FDA-Public Use
  Company Number: PHEH2014US011185

PATIENT
  Sex: Male

DRUGS (3)
  1. CLOZARIL [Suspect]
     Dosage: UNK
     Dates: start: 1997
  2. CLOZARIL [Suspect]
     Dosage: UNK
     Dates: start: 20140521, end: 20140522
  3. CLOZAPINE [Suspect]
     Dosage: UNK

REACTIONS (1)
  - Schizophrenia [Unknown]
